FAERS Safety Report 9318987 (Version 1)
Quarter: 2013Q2

REPORT INFORMATION
  Report Type: Spontaneous
  Country: DE (occurrence: DE)
  Receive Date: 20130530
  Receipt Date: 20130530
  Transmission Date: 20140414
  Serious: Yes (Hospitalization)
  Sender: FDA-Public Use
  Company Number: DE-ELI_LILLY_AND_COMPANY-DE201305007450

PATIENT
  Sex: Male

DRUGS (4)
  1. HUMINSULIN REGULAR [Suspect]
     Indication: TYPE 2 DIABETES MELLITUS
     Route: 058
  2. HUMINSULIN NPH [Suspect]
     Indication: TYPE 2 DIABETES MELLITUS
     Route: 058
  3. METFORMIN [Concomitant]
  4. GLIMEPIRIDE [Concomitant]
     Dosage: UNK

REACTIONS (1)
  - Blood glucose increased [Recovered/Resolved]
